FAERS Safety Report 4718746-4 (Version None)
Quarter: 2005Q3

REPORT INFORMATION
  Report Type: 
  Country: None (occurrence: None)
  Receive Date: 20050719
  Receipt Date: 20050707
  Transmission Date: 20060218
  Serious: Yes (Death, Hospitalization)
  Sender: FDA-Public Use
  Company Number: 8007367

PATIENT
  Age: 67 Year
  Sex: Male

DRUGS (10)
  1. KEPPRA [Suspect]
     Indication: CONVULSION
     Dosage: 1000 MG 1/D; PO
     Route: 048
     Dates: start: 20030901, end: 20040901
  2. TEMOZOLOMIDE [Suspect]
     Indication: GLIOBLASTOMA
     Dosage: NI/D; PO
     Route: 048
     Dates: start: 20040201, end: 20040201
  3. TEMOZOLOMIDE [Suspect]
     Indication: GLIOBLASTOMA
     Dosage: NI/D; PO
     Route: 048
     Dates: start: 20040301
  4. PHENOBARBITAL [Suspect]
     Indication: CONVULSION
     Dosage: NI; PO
     Route: 048
  5. METOPROLOL [Concomitant]
  6. ALBUTEROL [Concomitant]
  7. DEXAMETHASONE [Concomitant]
  8. COLACE [Concomitant]
  9. SENNA [Concomitant]
  10. PROVIGIL [Concomitant]

REACTIONS (8)
  - ANAEMIA [None]
  - APLASIA PURE RED CELL [None]
  - BIOPSY BONE MARROW ABNORMAL [None]
  - BRAIN NEOPLASM MALIGNANT [None]
  - COMA [None]
  - MALIGNANT NEOPLASM PROGRESSION [None]
  - STATUS EPILEPTICUS [None]
  - THROMBOCYTOPENIA [None]
